FAERS Safety Report 17306886 (Version 2)
Quarter: 2020Q1

REPORT INFORMATION
  Report Type: Other
  Country: IT (occurrence: IT)
  Receive Date: 20200123
  Receipt Date: 20200331
  Transmission Date: 20200409
  Serious: Yes (Hospitalization)
  Sender: FDA-Public Use
  Company Number: IT-EMCURE PHARMACEUTICALS LTD-2019-EPL-1076

PATIENT
  Age: 76 Year
  Sex: Female

DRUGS (19)
  1. LUVION                             /00252501/ [Concomitant]
     Active Substance: CANRENOIC ACID
  2. BISOPROLOL FUMARATE. [Concomitant]
     Active Substance: BISOPROLOL FUMARATE
  3. ACETYLSALICYLIC ACID [Concomitant]
     Active Substance: ASPIRIN
     Dosage: UNK
  4. GLICLAZIDE [Concomitant]
     Active Substance: GLICLAZIDE
  5. ZOLEDRONIC ACID [Suspect]
     Active Substance: ZOLEDRONIC ACID
     Indication: PROPHYLAXIS
     Dosage: 1 DOSAGE FORM, CYCLICAL
     Route: 042
     Dates: end: 20190930
  6. ATORVASTATIN [Concomitant]
     Active Substance: ATORVASTATIN
  7. DELTACORTENE [Concomitant]
     Active Substance: PREDNISONE
  8. CONALKERAN [Concomitant]
  9. ZOLEDRONIC ACID [Suspect]
     Active Substance: ZOLEDRONIC ACID
     Indication: OSTEOPOROSIS
  10. ACICLOVIR                          /00587302/ [Concomitant]
     Active Substance: ACYCLOVIR SODIUM
  11. CARDIOASAWIN [Concomitant]
  12. ALLOPURINOL. [Concomitant]
     Active Substance: ALLOPURINOL
  13. AMLODIPINE [Concomitant]
     Active Substance: AMLODIPINE BESYLATE
  14. FUROSEMIDE. [Concomitant]
     Active Substance: FUROSEMIDE
  15. LASIX [Concomitant]
     Active Substance: FUROSEMIDE
  16. NORVASC [Concomitant]
     Active Substance: AMLODIPINE BESYLATE
  17. LAMIVUDINE. [Concomitant]
     Active Substance: LAMIVUDINE
  18. JANUMET [Concomitant]
     Active Substance: METFORMIN HYDROCHLORIDE\SITAGLIPTIN PHOSPHATE
  19. DIAMICRON [Concomitant]
     Active Substance: GLICLAZIDE

REACTIONS (3)
  - Seizure [Recovering/Resolving]
  - Hypocalcaemia [Recovering/Resolving]
  - Off label use [Recovered/Resolved]

NARRATIVE: CASE EVENT DATE: 20190930
